FAERS Safety Report 23252348 (Version 1)
Quarter: 2023Q4

REPORT INFORMATION
  Report Type: Spontaneous
  Country: AT (occurrence: None)
  Receive Date: 20231201
  Receipt Date: 20231201
  Transmission Date: 20240110
  Serious: Yes (Other)
  Sender: FDA-Public Use
  Company Number: 2023A270338

PATIENT
  Sex: Female

DRUGS (1)
  1. SYMBICORT [Suspect]
     Active Substance: BUDESONIDE\FORMOTEROL FUMARATE DIHYDRATE
     Dosage: UNKNOWN, DAILY
     Route: 055

REACTIONS (6)
  - Exposure during pregnancy [Unknown]
  - Seizure [Unknown]
  - Anaphylactic reaction [Unknown]
  - Urticaria [Unknown]
  - Dyspnoea [Unknown]
  - Seasonal allergy [Unknown]
